FAERS Safety Report 9375580 (Version 3)
Quarter: 2013Q4

REPORT INFORMATION
  Report Type: Report from Study
  Country: JP (occurrence: JP)
  Receive Date: 20130628
  Receipt Date: 20131025
  Transmission Date: 20140711
  Serious: Yes (Other)
  Sender: FDA-Public Use
  Company Number: JP-009507513-1306JPN013533

PATIENT
  Age: 49 Year
  Sex: Female

DRUGS (6)
  1. GLACTIV [Suspect]
     Indication: TYPE 2 DIABETES MELLITUS
     Dosage: 50 MG, QD AFTER BREAKFAST
     Route: 048
     Dates: start: 20120517, end: 20130311
  2. ROSUVASTATIN CALCIUM [Concomitant]
  3. BASEN [Concomitant]
     Dosage: UNK
     Dates: end: 20130416
  4. METFORMIN HYDROCHLORIDE [Concomitant]
  5. CARVEDILOL [Concomitant]
  6. ALLOPURINOL [Concomitant]

REACTIONS (3)
  - Glycosylated haemoglobin increased [Recovered/Resolved]
  - Glucose urine present [Recovered/Resolved]
  - Hyperglycaemia [Recovered/Resolved]
